FAERS Safety Report 15500520 (Version 1)
Quarter: 2018Q4

REPORT INFORMATION
  Report Type: Other
  Country: IT (occurrence: IT)
  Receive Date: 20181015
  Receipt Date: 20181015
  Transmission Date: 20190205
  Serious: Yes (Other)
  Sender: FDA-Public Use
  Company Number: IT-APOTEX-2018AP022668

PATIENT
  Age: 57 Year
  Sex: Male

DRUGS (4)
  1. PAROXETINE. [Suspect]
     Active Substance: PAROXETINE
     Indication: SCHIZOAFFECTIVE DISORDER
     Dosage: 30 MG, QD
     Route: 048
     Dates: start: 20180701, end: 20180917
  2. ZYPREXA [Suspect]
     Active Substance: OLANZAPINE
     Indication: SCHIZOAFFECTIVE DISORDER
     Dosage: 2 DF, QD
     Route: 048
     Dates: start: 20180701, end: 20180917
  3. AKINETON [Suspect]
     Active Substance: BIPERIDEN HYDROCHLORIDE
     Indication: EXTRAPYRAMIDAL DISORDER
     Dosage: 1 DF, QD
     Route: 048
     Dates: start: 20180701, end: 20180917
  4. SERENASE                           /00027401/ [Suspect]
     Active Substance: HALOPERIDOL
     Indication: SCHIZOAFFECTIVE DISORDER
     Dosage: 2 DF, QD
     Route: 048
     Dates: start: 20180701, end: 20180917

REACTIONS (1)
  - Hypertransaminasaemia [Recovering/Resolving]

NARRATIVE: CASE EVENT DATE: 20180917
